FAERS Safety Report 10006711 (Version 1)
Quarter: 2014Q1

REPORT INFORMATION
  Report Type: Spontaneous
  Country: US (occurrence: US)
  Receive Date: 20140313
  Receipt Date: 20140313
  Transmission Date: 20141002
  Serious: No
  Sender: FDA-Public Use
  Company Number: US-PFIZER INC-2014072460

PATIENT
  Age: 83 Year
  Sex: Female
  Weight: 43.31 kg

DRUGS (2)
  1. LIPITOR [Suspect]
     Indication: BLOOD CHOLESTEROL DECREASED
     Dosage: 20 MG, DAILY
  2. LIPITOR [Suspect]
     Dosage: 10 MG, DAILY
     Dates: start: 2013, end: 2013

REACTIONS (1)
  - Abdominal pain [Unknown]
